FAERS Safety Report 5450118-X (Version None)
Quarter: 2007Q3

REPORT INFORMATION
  Report Type: 
  Country: None (occurrence: None)
  Receive Date: 20070912
  Receipt Date: 20070906
  Transmission Date: 20080115
  Serious: No
  Sender: FDA-Public Use
  Company Number: A0676085A

PATIENT
  Sex: Female
  Weight: 2.4 kg

DRUGS (7)
  1. COMBIVIR [Suspect]
     Indication: HIV INFECTION
     Dosage: 900MG PER DAY
     Dates: start: 20070315
  2. AZT [Suspect]
     Indication: HIV INFECTION
     Dosage: 555.75MG PER DAY
     Dates: start: 20070821, end: 20070821
  3. KALETRA [Concomitant]
     Indication: HIV INFECTION
     Dosage: 999.6MG PER DAY
     Dates: start: 20070101, end: 20070215
  4. TRUVADA [Concomitant]
     Indication: HIV INFECTION
     Dosage: 500MG PER DAY
     Dates: start: 20070101, end: 20070215
  5. VIRACEPT [Concomitant]
     Indication: HIV INFECTION
     Dosage: 2500MG PER DAY
     Dates: start: 20070101, end: 20070215
  6. NORVIR [Concomitant]
     Indication: HIV INFECTION
     Dosage: 200MG PER DAY
     Dates: start: 20070315, end: 20070330
  7. REYATAZ [Concomitant]
     Indication: HIV INFECTION
     Dosage: 600MG PER DAY
     Dates: start: 20070501, end: 20070515

REACTIONS (2)
  - DRUG EXPOSURE DURING PREGNANCY [None]
  - NORMAL NEWBORN [None]
